FAERS Safety Report 19359596 (Version 1)
Quarter: 2021Q2

REPORT INFORMATION
  Report Type: Spontaneous
  Country: IE (occurrence: IE)
  Receive Date: 20210602
  Receipt Date: 20210602
  Transmission Date: 20210717
  Serious: Yes (Hospitalization, Other)
  Sender: FDA-Public Use
  Company Number: IE-ACCORD-226290

PATIENT
  Age: 45 Year
  Sex: Female

DRUGS (2)
  1. MITOMYCIN. [Concomitant]
     Active Substance: MITOMYCIN
     Indication: ANAL CANCER
  2. FLUOROURACIL. [Suspect]
     Active Substance: FLUOROURACIL
     Indication: ANAL CANCER

REACTIONS (6)
  - Myocardial infarction [Recovered/Resolved]
  - Left ventricular dilatation [Recovered/Resolved]
  - Left ventricular dysfunction [Recovered/Resolved]
  - Electrocardiogram T wave inversion [Recovered/Resolved]
  - Myocarditis [Recovered/Resolved]
  - Pericardial effusion [Recovered/Resolved]
